FAERS Safety Report 21995843 (Version 2)
Quarter: 2023Q1

REPORT INFORMATION
  Report Type: Spontaneous
  Country: US (occurrence: US)
  Receive Date: 20230215
  Receipt Date: 20230309
  Transmission Date: 20230417
  Serious: No
  Sender: FDA-Public Use
  Company Number: US-MYLANLABS-2023M1010496

PATIENT
  Age: 72 Year
  Sex: Female
  Weight: 71.2 kg

DRUGS (1)
  1. AMLODIPINE [Suspect]
     Active Substance: AMLODIPINE BESYLATE
     Indication: Hypertension
     Dosage: 2.5 MILLIGRAM
     Route: 065

REACTIONS (7)
  - COVID-19 [Recovering/Resolving]
  - Restless legs syndrome [Unknown]
  - Pain in extremity [Recovered/Resolved]
  - Micturition urgency [Recovered/Resolved]
  - Hypotension [Recovered/Resolved]
  - Paraesthesia [Recovered/Resolved]
  - Arthralgia [Unknown]

NARRATIVE: CASE EVENT DATE: 20230119
